FAERS Safety Report 14248744 (Version 2)
Quarter: 2018Q1

REPORT INFORMATION
  Report Type: Spontaneous
  Country: US (occurrence: US)
  Receive Date: 20171204
  Receipt Date: 20180111
  Transmission Date: 20180508
  Serious: Yes (Life-Threatening, Hospitalization, Disabling, Other)
  Sender: FDA-Public Use
  Company Number: US-009507513-1711USA013698

PATIENT
  Age: 83 Year
  Sex: Male

DRUGS (1)
  1. KEYTRUDA [Suspect]
     Active Substance: PEMBROLIZUMAB
     Indication: SQUAMOUS CELL CARCINOMA OF SKIN
     Dosage: 200 MG, Q3W
     Route: 042

REACTIONS (5)
  - Necrotising fasciitis [Unknown]
  - Myositis [Unknown]
  - Liver function test increased [Unknown]
  - Blood bilirubin increased [Unknown]
  - Product use in unapproved indication [Unknown]
